FAERS Safety Report 9739429 (Version 1)
Quarter: 2013Q4

REPORT INFORMATION
  Report Type: Report from Study
  Country: FR (occurrence: FR)
  Receive Date: 20131209
  Receipt Date: 20131209
  Transmission Date: 20140711
  Serious: Yes (Other)
  Sender: FDA-Public Use
  Company Number: FR-ROCHE-1316528

PATIENT
  Age: 71 Year
  Sex: Male

DRUGS (3)
  1. RITUXIMAB [Suspect]
     Indication: ANTI-NEUTROPHIL CYTOPLASMIC ANTIBODY POSITIVE VASCULITIS
     Dosage: TOTAL 4 DOSES, TIME SINCE FIRTS DOSE AND LAST DOSE TILL SAE 6 MONTHS AND 6 MONTH
     Route: 065
  2. PREDNISONE [Suspect]
     Indication: ANTI-NEUTROPHIL CYTOPLASMIC ANTIBODY POSITIVE VASCULITIS
     Route: 065
  3. CYCLOSPORIN [Suspect]
     Indication: ANTI-NEUTROPHIL CYTOPLASMIC ANTIBODY POSITIVE VASCULITIS
     Route: 065

REACTIONS (3)
  - Septic shock [Recovering/Resolving]
  - Pneumonitis [Recovering/Resolving]
  - Respiratory failure [Recovering/Resolving]
